FAERS Safety Report 7650731-5 (Version None)
Quarter: 2011Q3

REPORT INFORMATION
  Report Type: 
  Country: None (occurrence: None)
  Receive Date: 20110727
  Receipt Date: 20110714
  Transmission Date: 20111222
  Serious: Yes (Hospitalization, Other)
  Sender: FDA-Public Use
  Company Number: 2011SP033672

PATIENT
  Age: 64 Year
  Sex: Male

DRUGS (9)
  1. METRONIDAZOLE [Concomitant]
  2. MYCOPHENOLATE MOFETIL [Concomitant]
  3. ENOXAPARIN [Concomitant]
  4. CEFTRIAXONE [Concomitant]
  5. PEG-INTRON [Suspect]
     Indication: HEPATITIS C
     Dosage: 100 MCG
     Dates: start: 20101001
  6. RIBAVIRIN [Suspect]
     Indication: HEPATITIS C
     Dosage: 1000 MG
  7. METOCLOPRAMIDE [Concomitant]
  8. PROPRANOLOL [Concomitant]
  9. TACROLIMUS [Concomitant]

REACTIONS (9)
  - ABDOMINAL PAIN [None]
  - GASTRITIS [None]
  - ASCITES [None]
  - VARICES OESOPHAGEAL [None]
  - LIVER ABSCESS [None]
  - PLEURAL EFFUSION [None]
  - ANAEMIA [None]
  - BLOOD GLUCOSE INCREASED [None]
  - THROMBOCYTOPENIA [None]
